FAERS Safety Report 19172901 (Version 4)
Quarter: 2021Q3

REPORT INFORMATION
  Report Type: Spontaneous
  Country: US (occurrence: US)
  Receive Date: 20210423
  Receipt Date: 20210819
  Transmission Date: 20211014
  Serious: No
  Sender: FDA-Public Use
  Company Number: US-BIOGEN-2021BI00997488

PATIENT
  Sex: Female

DRUGS (16)
  1. BETAMETHASONE. [Concomitant]
     Active Substance: BETAMETHASONE
     Route: 065
  2. HYDROCODONE/ACETAMINOPHEN [Concomitant]
     Active Substance: ACETAMINOPHEN\HYDROCODONE
     Route: 065
  3. EQ LORATADINE [Concomitant]
     Route: 065
  4. AIMOVIG [Concomitant]
     Active Substance: ERENUMAB-AOOE
     Route: 065
  5. VUMERITY [Suspect]
     Active Substance: DIROXIMEL FUMARATE
     Indication: MULTIPLE SCLEROSIS
     Route: 065
     Dates: start: 20210319
  6. KRILL OIL [Concomitant]
     Active Substance: DIETARY SUPPLEMENT\KRILL OIL
     Route: 065
  7. CARVEDILOL. [Concomitant]
     Active Substance: CARVEDILOL
     Route: 065
  8. VITAMIN D3 [Concomitant]
     Active Substance: CHOLECALCIFEROL
     Route: 065
  9. VUMERITY [Suspect]
     Active Substance: DIROXIMEL FUMARATE
     Dosage: FOR 7 DAYS
     Route: 048
  10. NABUMETONE. [Concomitant]
     Active Substance: NABUMETONE
     Route: 065
  11. PANTOPRAZOLE SODIUM. [Concomitant]
     Active Substance: PANTOPRAZOLE SODIUM
     Route: 065
  12. BIOTIN [Concomitant]
     Active Substance: BIOTIN
     Route: 065
  13. NASACORT [Concomitant]
     Active Substance: TRIAMCINOLONE ACETONIDE
     Route: 065
  14. VUMERITY [Suspect]
     Active Substance: DIROXIMEL FUMARATE
     Dosage: MAINTENANCE DOSE
     Route: 048
  15. GABAPENTIN. [Concomitant]
     Active Substance: GABAPENTIN
     Route: 065
  16. NITROGLYCERIN. [Concomitant]
     Active Substance: NITROGLYCERIN
     Route: 065

REACTIONS (5)
  - Drug ineffective [Unknown]
  - Muscular weakness [Not Recovered/Not Resolved]
  - Gait inability [Unknown]
  - Asthenia [Not Recovered/Not Resolved]
  - Flushing [Recovered/Resolved]

NARRATIVE: CASE EVENT DATE: 2021
